FAERS Safety Report 24700470 (Version 2)
Quarter: 2024Q4

REPORT INFORMATION
  Report Type: Spontaneous
  Country: JP (occurrence: JP)
  Receive Date: 20241205
  Receipt Date: 20241223
  Transmission Date: 20250115
  Serious: Yes (Other)
  Sender: MALLINCKRODT
  Company Number: JP-MALLINCKRODT-MNK202407293

PATIENT
  Age: 53 Year
  Sex: Male

DRUGS (2)
  1. NITRIC OXIDE [Suspect]
     Active Substance: NITRIC OXIDE
     Indication: Pulmonary hypertension
     Dosage: UNKNOWN
     Route: 055
  2. VASOPRESSIN [Concomitant]
     Active Substance: VASOPRESSIN
     Dosage: UNKNOWN

REACTIONS (2)
  - Mediastinitis [Unknown]
  - Cardiac ventricular thrombosis [Unknown]
